FAERS Safety Report 6282102-0 (Version None)
Quarter: 2009Q3

REPORT INFORMATION
  Report Type: 
  Country: None (occurrence: None)
  Receive Date: 20090724
  Receipt Date: 20090713
  Transmission Date: 20100115
  Serious: Yes (Other)
  Sender: FDA-Public Use
  Company Number: IE-JNJFOC-20090704475

PATIENT
  Sex: Female

DRUGS (4)
  1. REMICADE [Suspect]
     Indication: DRUG USE FOR UNKNOWN INDICATION
     Route: 042
  2. HYDROCORTISONE [Concomitant]
  3. PIRITON [Concomitant]
  4. PARACETAMOL [Concomitant]

REACTIONS (4)
  - CHEST DISCOMFORT [None]
  - FACE OEDEMA [None]
  - FLUSHING [None]
  - NAUSEA [None]
